FAERS Safety Report 6248728-5 (Version None)
Quarter: 2009Q2

REPORT INFORMATION
  Report Type: 
  Country: None (occurrence: None)
  Receive Date: 20090625
  Receipt Date: 20090625
  Transmission Date: 20091009
  Serious: Yes (Hospitalization)
  Sender: FDA-Public Use
  Company Number: None

PATIENT
  Age: 50 Year

DRUGS (2)
  1. ENBREL [Suspect]
     Indication: RHEUMATOID ARTHRITIS
     Dosage: 50 MG SQ WEEKLY
     Route: 058
     Dates: start: 20071012, end: 20090401
  2. LEFLUNOMIDE [Suspect]
     Dosage: LEFLUNOMIDE 20 MG QD
     Dates: start: 20020801

REACTIONS (3)
  - DEVICE RELATED INFECTION [None]
  - POSTOPERATIVE WOUND INFECTION [None]
  - STAPHYLOCOCCAL INFECTION [None]
